FAERS Safety Report 16661956 (Version 4)
Quarter: 2020Q2

REPORT INFORMATION
  Report Type: Spontaneous
  Country: IN (occurrence: IN)
  Receive Date: 20190802
  Receipt Date: 20200423
  Transmission Date: 20200713
  Serious: Yes (Other)
  Sender: FDA-Public Use
  Company Number: IN-PFIZER INC-2019325199

PATIENT
  Age: 44 Year
  Sex: Female

DRUGS (2)
  1. DEXAMETHASONE. [Suspect]
     Active Substance: DEXAMETHASONE
     Dosage: UNK
  2. CRIZALK [Suspect]
     Active Substance: CRIZOTINIB
     Indication: ANAPLASTIC LYMPHOMA KINASE GENE MUTATION
     Dosage: 250 MG, 2X/DAY
     Route: 048
     Dates: start: 20181218

REACTIONS (8)
  - Myopathy [Unknown]
  - Plasmodium ovale infection [Unknown]
  - Dermatophytosis [Unknown]
  - Oedema [Unknown]
  - Cushing^s syndrome [Unknown]
  - Deep vein thrombosis [Unknown]
  - Cognitive disorder [Unknown]
  - Candida infection [Unknown]

NARRATIVE: CASE EVENT DATE: 201903
